FAERS Safety Report 24699690 (Version 1)
Quarter: 2024Q4

REPORT INFORMATION
  Report Type: Spontaneous
  Country: CH (occurrence: CH)
  Receive Date: 20241205
  Receipt Date: 20241205
  Transmission Date: 20250114
  Serious: Yes (Hospitalization, Other)
  Sender: ALEXION PHARMACEUTICALS
  Company Number: CH-ASTRAZENECA-202411GLO025887CH

PATIENT
  Age: 50 Year
  Weight: 80 kg

DRUGS (39)
  1. QUETIAPINE FUMARATE [Suspect]
     Active Substance: QUETIAPINE FUMARATE
     Dosage: 600 MILLIGRAM, QD
     Route: 065
  2. QUETIAPINE FUMARATE [Suspect]
     Active Substance: QUETIAPINE FUMARATE
     Dosage: 600 MILLIGRAM, QD
  3. QUETIAPINE FUMARATE [Suspect]
     Active Substance: QUETIAPINE FUMARATE
     Dosage: 600 MILLIGRAM, QD
     Route: 065
  4. QUETIAPINE FUMARATE [Suspect]
     Active Substance: QUETIAPINE FUMARATE
     Dosage: 600 MILLIGRAM, QD
  5. RIVOTRIL [Suspect]
     Active Substance: CLONAZEPAM
     Dosage: 0.5 MILLIGRAM, TID
  6. RIVOTRIL [Suspect]
     Active Substance: CLONAZEPAM
     Dosage: 0.5 MILLIGRAM, TID
  7. BROMAZEPAM [Suspect]
     Active Substance: BROMAZEPAM
     Dosage: 3 MILLIGRAM
  8. BROMAZEPAM [Suspect]
     Active Substance: BROMAZEPAM
     Dosage: 3 MILLIGRAM
  9. OLANZAPINE [Suspect]
     Active Substance: OLANZAPINE
     Indication: Psychotic disorder
  10. OLANZAPINE [Suspect]
     Active Substance: OLANZAPINE
  11. OXAZEPAM [Suspect]
     Active Substance: OXAZEPAM
     Indication: Neuropsychological symptoms
     Dosage: UNK
  12. OXAZEPAM [Suspect]
     Active Substance: OXAZEPAM
     Indication: Drug intolerance
     Dosage: UNK
  13. LORAZEPAM [Suspect]
     Active Substance: LORAZEPAM
     Dosage: UNK
  14. LORAZEPAM [Suspect]
     Active Substance: LORAZEPAM
     Dosage: UNK
  15. LORAZEPAM [Suspect]
     Active Substance: LORAZEPAM
     Dosage: UNK
  16. LORAZEPAM [Suspect]
     Active Substance: LORAZEPAM
     Dosage: UNK
  17. LORAZEPAM [Suspect]
     Active Substance: LORAZEPAM
     Dosage: UNK
  18. LORAZEPAM [Suspect]
     Active Substance: LORAZEPAM
     Dosage: UNK
  19. LORAZEPAM [Suspect]
     Active Substance: LORAZEPAM
     Dosage: UNK
  20. LORAZEPAM [Suspect]
     Active Substance: LORAZEPAM
     Dosage: UNK
  21. ALPRAZOLAM [Suspect]
     Active Substance: ALPRAZOLAM
     Dosage: 0.5 MILLIGRAM, BID
  22. ALPRAZOLAM [Suspect]
     Active Substance: ALPRAZOLAM
     Dosage: 0.5 MILLIGRAM, BID
  23. PRAZEPAM [Suspect]
     Active Substance: PRAZEPAM
     Indication: Drug withdrawal syndrome
  24. PRAZEPAM [Suspect]
     Active Substance: PRAZEPAM
  25. VALIUM [Suspect]
     Active Substance: DIAZEPAM
     Indication: Drug withdrawal syndrome
  26. VALIUM [Suspect]
     Active Substance: DIAZEPAM
  27. SERTRALINE [Suspect]
     Active Substance: SERTRALINE HYDROCHLORIDE
  28. SERTRALINE [Suspect]
     Active Substance: SERTRALINE HYDROCHLORIDE
  29. PAROXETINE [Concomitant]
     Active Substance: PAROXETINE
     Indication: Somnolence
  30. ARIPIPRAZOLE [Concomitant]
     Active Substance: ARIPIPRAZOLE
     Indication: Akathisia
  31. ESCITALOPRAM [Concomitant]
     Active Substance: ESCITALOPRAM OXALATE
  32. PREGABALIN [Concomitant]
     Active Substance: PREGABALIN
  33. LITHIUM [Concomitant]
     Active Substance: LITHIUM
  34. VALPROATE [Concomitant]
     Active Substance: VALPROIC ACID
  35. LEVOMEPROMAZINE [Concomitant]
     Active Substance: LEVOMEPROMAZINE
  36. LAMOTRIGINE [Concomitant]
     Active Substance: LAMOTRIGINE
  37. REBOXETINE [Concomitant]
     Active Substance: REBOXETINE
  38. FLUVOXAMINE [Concomitant]
     Active Substance: FLUVOXAMINE
  39. CLORAZEPATE DIPOTASSIUM [Concomitant]
     Active Substance: CLORAZEPATE DIPOTASSIUM

REACTIONS (3)
  - Drug withdrawal syndrome [Not Recovered/Not Resolved]
  - Drug ineffective [Not Recovered/Not Resolved]
  - Drug intolerance [Not Recovered/Not Resolved]
